FAERS Safety Report 10785293 (Version 2)
Quarter: 2015Q2

REPORT INFORMATION
  Report Type: Report from Study
  Country: CO (occurrence: CO)
  Receive Date: 20150211
  Receipt Date: 20150402
  Transmission Date: 20150821
  Serious: Yes (Hospitalization)
  Sender: FDA-Public Use
  Company Number: CO-SA-2015SA014039

PATIENT
  Age: 31 Year
  Sex: Female
  Weight: 52 kg

DRUGS (2)
  1. CEREZYME [Suspect]
     Active Substance: IMIGLUCERASE
     Indication: GAUCHER^S DISEASE
     Route: 042
     Dates: start: 2002
  2. MESIGYNA [Concomitant]
     Indication: CONTRACEPTION
     Route: 030
     Dates: end: 201411

REACTIONS (3)
  - Necrosis [Recovering/Resolving]
  - Pain in extremity [Unknown]
  - Exposure during pregnancy [Unknown]

NARRATIVE: CASE EVENT DATE: 2010
